FAERS Safety Report 4919087-2 (Version None)
Quarter: 2006Q1

REPORT INFORMATION
  Report Type: 
  Country: None (occurrence: None)
  Receive Date: 20060216
  Receipt Date: 20060208
  Transmission Date: 20060701
  Serious: Yes (Death, Hospitalization)
  Sender: FDA-Public Use
  Company Number: 163-20785-06010460

PATIENT
  Age: 82 Year
  Sex: Female

DRUGS (12)
  1. THALOMID [Suspect]
     Indication: MULTIPLE MYELOMA
     Dosage: 200 MG, DAILY, ORAL
     Route: 048
     Dates: start: 20030601, end: 20060101
  2. PREDNISONE TAB [Concomitant]
  3. GLUCOVANCE [Concomitant]
  4. NEXIUM [Concomitant]
  5. PLETAL [Concomitant]
  6. LISINOPRIL [Concomitant]
  7. CALCIUM CARBONATE (CALCIUM CARBONATE) [Concomitant]
  8. FOSAMAX [Concomitant]
  9. CARTIA XT [Concomitant]
  10. ARANESP (DARBETPOETIN ALFA) [Concomitant]
  11. MESTINON [Concomitant]
  12. METAMUCIL [Concomitant]

REACTIONS (4)
  - BRADYCARDIA [None]
  - HYPOTENSION [None]
  - PULMONARY OEDEMA [None]
  - RESPIRATORY ARREST [None]
